FAERS Safety Report 17368991 (Version 1)
Quarter: 2020Q1

REPORT INFORMATION
  Report Type: Spontaneous
  Country: FR (occurrence: FR)
  Receive Date: 20200204
  Receipt Date: 20200204
  Transmission Date: 20200409
  Serious: Yes (Other)
  Sender: FDA-Public Use
  Company Number: FR-ALLERGAN-2003947US

PATIENT
  Sex: Male

DRUGS (4)
  1. TEMERIT [Concomitant]
     Active Substance: NEBIVOLOL
  2. ATACAND [Concomitant]
     Active Substance: CANDESARTAN CILEXETIL
  3. SILODOSIN - BP [Suspect]
     Active Substance: SILODOSIN
     Indication: BENIGN PROSTATIC HYPERPLASIA
     Dosage: UNK
     Route: 065
     Dates: start: 2019, end: 20200115
  4. CRESTOR [Concomitant]
     Active Substance: ROSUVASTATIN CALCIUM

REACTIONS (5)
  - Tinnitus [Recovering/Resolving]
  - Fatigue [Recovering/Resolving]
  - Deafness [Not Recovered/Not Resolved]
  - Eye haemorrhage [Not Recovered/Not Resolved]
  - Dizziness [Recovering/Resolving]

NARRATIVE: CASE EVENT DATE: 20200115
